FAERS Safety Report 11657139 (Version 2)
Quarter: 2015Q4

REPORT INFORMATION
  Report Type: Report from Study
  Country: US (occurrence: US)
  Receive Date: 20151023
  Receipt Date: 20151028
  Transmission Date: 20160304
  Serious: No
  Sender: FDA-Public Use
  Company Number: US-ABBVIE-15P-163-1477886-00

PATIENT
  Sex: Female

DRUGS (2)
  1. LUPRON DEPOT [Suspect]
     Active Substance: LEUPROLIDE ACETATE
     Indication: CYST
  2. LUPRON DEPOT [Suspect]
     Active Substance: LEUPROLIDE ACETATE
     Indication: ENDOMETRIOSIS
     Route: 065
     Dates: start: 2012, end: 2012

REACTIONS (8)
  - Normal newborn [Unknown]
  - Cyst [Unknown]
  - Exposure during pregnancy [Unknown]
  - Weight increased [Unknown]
  - Endometriosis [Unknown]
  - Hot flush [Unknown]
  - Ovarian enlargement [Unknown]
  - Uveitis [Unknown]

NARRATIVE: CASE EVENT DATE: 2013
